FAERS Safety Report 8121819-X (Version None)
Quarter: 2012Q1

REPORT INFORMATION
  Report Type: 
  Country: None (occurrence: None)
  Receive Date: 20120207
  Receipt Date: 20120207
  Transmission Date: 20120608
  Serious: No
  Sender: FDA-Public Use
  Company Number: None

PATIENT

DRUGS (1)
  1. GONADOTROPIN (HCG) [Suspect]
     Indication: WEIGHT DECREASED

REACTIONS (2)
  - LEGAL PROBLEM [None]
  - OFF LABEL USE [None]
